FAERS Safety Report 15378955 (Version 1)
Quarter: 2018Q3

REPORT INFORMATION
  Report Type: Spontaneous
  Country: US (occurrence: US)
  Receive Date: 20180913
  Receipt Date: 20180913
  Transmission Date: 20181010
  Serious: No
  Sender: FDA-Public Use
  Company Number: US-BAUSCH-BL-2017-026484

PATIENT
  Age: 2 Year
  Sex: Male

DRUGS (2)
  1. CALCIUM DISODIUM VERSENATE [Suspect]
     Active Substance: EDETATE CALCIUM DISODIUM
     Indication: OFF LABEL USE
  2. CALCIUM DISODIUM VERSENATE [Suspect]
     Active Substance: EDETATE CALCIUM DISODIUM
     Indication: NEURODEGENERATIVE DISORDER
     Route: 065

REACTIONS (1)
  - Drug effective for unapproved indication [Not Recovered/Not Resolved]
